FAERS Safety Report 12061741 (Version 1)
Quarter: 2016Q1

REPORT INFORMATION
  Report Type: Spontaneous
  Country: DE (occurrence: DE)
  Receive Date: 20160210
  Receipt Date: 20160210
  Transmission Date: 20160526
  Serious: Yes (Hospitalization)
  Sender: FDA-Public Use
  Company Number: DE-TEVA-632843GER

PATIENT
  Sex: Female

DRUGS (1)
  1. DICLO-RATIOPHARM SCHMERZGEL [Suspect]
     Active Substance: DICLOFENAC
     Indication: ARTHRALGIA
     Route: 061

REACTIONS (7)
  - Dermatitis contact [Unknown]
  - Conjunctivitis [Unknown]
  - Pyrexia [Unknown]
  - Pain [Unknown]
  - Burning sensation [Unknown]
  - Nausea [Unknown]
  - Face oedema [Unknown]
